FAERS Safety Report 9475719 (Version 1)
Quarter: 2013Q3

REPORT INFORMATION
  Report Type: Spontaneous
  Country: US (occurrence: None)
  Receive Date: 20130821
  Receipt Date: 20130821
  Transmission Date: 20140515
  Serious: Yes (Hospitalization)
  Sender: FDA-Public Use
  Company Number: 2013AP007359

PATIENT
  Age: 20 Year
  Sex: Male

DRUGS (2)
  1. ALPRAZOLAM [Suspect]
  2. OXYCODONE [Suspect]

REACTIONS (3)
  - Cardiac enzymes increased [None]
  - Mental status changes [None]
  - Left ventricular dysfunction [None]
